FAERS Safety Report 14352170 (Version 2)
Quarter: 2018Q1

REPORT INFORMATION
  Report Type: Spontaneous
  Country: US (occurrence: US)
  Receive Date: 20180104
  Receipt Date: 20180115
  Transmission Date: 20180509
  Serious: Yes (Other)
  Sender: FDA-Public Use
  Company Number: US-GE HEALTHCARE LIFE SCIENCES-2018CSU000016

PATIENT
  Age: 54 Year
  Sex: Male
  Weight: 113 kg

DRUGS (2)
  1. BARIUM [Concomitant]
     Active Substance: BARIUM
     Indication: RENAL CANCER
     Dosage: UNK UNK, SINGLE
     Route: 048
     Dates: start: 20180103, end: 20180103
  2. OMNIPAQUE [Suspect]
     Active Substance: IOHEXOL
     Indication: RENAL CANCER
     Dosage: 100 ML, SINGLE
     Route: 042
     Dates: start: 20180103, end: 20180103

REACTIONS (1)
  - Anaphylactic reaction [Recovered/Resolved]

NARRATIVE: CASE EVENT DATE: 20180103
